FAERS Safety Report 12971168 (Version 2)
Quarter: 2016Q4

REPORT INFORMATION
  Report Type: Spontaneous
  Country: US (occurrence: US)
  Receive Date: 20161123
  Receipt Date: 20161128
  Transmission Date: 20170207
  Serious: No
  Sender: FDA-Public Use
  Company Number: US-JAZZ-2016-US-019192

PATIENT
  Sex: Female

DRUGS (33)
  1. ACETYL L-CARNITINE                 /00949201/ [Concomitant]
  2. MOLYBDENUM [Concomitant]
     Active Substance: MOLYBDENUM
  3. PROBIOTIC ACIDOPHILUS              /00079701/ [Concomitant]
     Active Substance: LACTOBACILLUS ACIDOPHILUS
  4. VINPOCETINE [Concomitant]
     Active Substance: VINPOCETINE
  5. IRON [Concomitant]
     Active Substance: IRON
  6. LECITHIN [Concomitant]
     Active Substance: LECITHIN
  7. VYVANSE [Concomitant]
     Active Substance: LISDEXAMFETAMINE DIMESYLATE
  8. CHOLINE MAGNESIUM TRISALICYLATE. [Concomitant]
     Active Substance: CHOLINE MAGNESIUM TRISALICYLATE
  9. GOTU KOLA                          /01477801/ [Concomitant]
  10. L TRYPTOPHAN [Concomitant]
  11. ADDERALL [Concomitant]
     Active Substance: AMPHETAMINE ASPARTATE\AMPHETAMINE SULFATE\DEXTROAMPHETAMINE SACCHARATE\DEXTROAMPHETAMINE SULFATE
  12. POTASSIUM BITARTRATE. [Concomitant]
     Active Substance: POTASSIUM BITARTRATE
  13. TRIMETHYLGLYCINE [Concomitant]
  14. XYREM [Suspect]
     Active Substance: SODIUM OXYBATE
     Dosage: 3 G, BID
     Route: 048
     Dates: start: 201401, end: 2014
  15. CALCIUM +D                         /07511201/ [Concomitant]
  16. MAGNESIUM CARBONATE [Concomitant]
     Active Substance: MAGNESIUM CARBONATE
  17. VITAMIN B COMPLEX [Concomitant]
     Active Substance: CYANOCOBALAMIN\DEXPANTHENOL\NIACINAMIDE\PYRIDOXINE HYDROCHLORIDE\RIBOFLAVIN 5^-PHOSPHATE SODIUM\THIAMINE HYDROCHLORIDE\VITAMIN B COMPLEX
  18. DEXEDRINE [Concomitant]
     Active Substance: DEXTROAMPHETAMINE SULFATE
  19. XYREM [Suspect]
     Active Substance: SODIUM OXYBATE
     Indication: NARCOLEPSY
     Dosage: 2.25 G, BID
     Route: 048
     Dates: start: 201312, end: 201401
  20. COENZYME Q10 [Concomitant]
     Active Substance: UBIDECARENONE
  21. OMEGA 3                            /01333901/ [Concomitant]
     Active Substance: FISH OIL\TOCOPHEROL
  22. SILYMARIN [Concomitant]
     Active Substance: MILK THISTLE
  23. TAURINE [Concomitant]
     Active Substance: TAURINE
  24. ZINC CHELATE [Concomitant]
  25. L-GLUTAMINE                        /00503401/ [Concomitant]
     Active Substance: GLUTAMINE
  26. VITAMIN C TR                          /00008001/ [Concomitant]
  27. CHROMIUM PICOLINAT [Concomitant]
  28. L-THEANINE [Concomitant]
     Active Substance: DIETARY SUPPLEMENT
  29. NUVIGIL [Concomitant]
     Active Substance: ARMODAFINIL
  30. SELENIUM [Concomitant]
     Active Substance: SELENIUM
  31. COLEUS [Concomitant]
  32. IODINE. [Concomitant]
     Active Substance: IODINE
  33. VITAMIN D                          /00107901/ [Concomitant]
     Active Substance: ERGOCALCIFEROL

REACTIONS (1)
  - Feeling abnormal [Unknown]
